FAERS Safety Report 8506247-7 (Version None)
Quarter: 2012Q3

REPORT INFORMATION
  Report Type: 
  Country: None (occurrence: None)
  Receive Date: 20120712
  Receipt Date: 20120703
  Transmission Date: 20120928
  Serious: Yes (Death, Hospitalization, Disabling)
  Sender: FDA-Public Use
  Company Number: TR-ROCHE-1085441

PATIENT
  Sex: Male
  Weight: 86 kg

DRUGS (1)
  1. METALYSE [Suspect]
     Indication: ACUTE MYOCARDIAL INFARCTION
     Route: 040
     Dates: start: 20120702, end: 20120702

REACTIONS (1)
  - VENTRICULAR FIBRILLATION [None]
